FAERS Safety Report 16583682 (Version 1)
Quarter: 2019Q3

REPORT INFORMATION
  Report Type: Spontaneous
  Country: DE (occurrence: DE)
  Receive Date: 20190717
  Receipt Date: 20190717
  Transmission Date: 20191004
  Serious: Yes (Hospitalization)
  Sender: FDA-Public Use
  Company Number: DE-TEVA-2019-DE-1077190

PATIENT
  Age: 49 Year
  Sex: Female

DRUGS (16)
  1. TAMOXIFEN-RATIOPHARM 20MG [Suspect]
     Active Substance: TAMOXIFEN CITRATE
     Dosage: 20 MG, 0-0-1-0, TABLETTEN
     Route: 048
  2. TACROLIMUS. [Suspect]
     Active Substance: TACROLIMUS
     Dosage: 3 MG, 1-0-1-0, CAPSULES
     Route: 048
  3. PREDNISOLONE. [Suspect]
     Active Substance: PREDNISOLONE
     Dosage: 20 MG, 1-0-0-0, TABLETS
     Route: 048
  4. MEROPENEM. [Concomitant]
     Active Substance: MEROPENEM
     Dosage: 500 MG, 1-0-1-0, SOLUTION FOR INJECTION/INFUSION
     Route: 042
  5. URAPIDIL [Concomitant]
     Active Substance: URAPIDIL
     Dosage: 150 MG, NEED, SOLUTION FOR INJECTION/INFUSION
     Route: 042
  6. PANTOPRAZOL [Concomitant]
     Active Substance: PANTOPRAZOLE SODIUM
     Dosage: 40 MG, 0-0-1-0, TABLETS
     Route: 048
  7. BICANORM [Concomitant]
     Active Substance: SODIUM BICARBONATE
     Dosage: 1 G, 1-1-1-0, TABLETS
     Route: 048
  8. L-THYROX HEXAL 50UG [Concomitant]
     Dosage: 50 MICROGRAMS, 1-0-0-0, TABLETS
     Route: 048
  9. VALCYTE [Concomitant]
     Active Substance: VALGANCICLOVIR HYDROCHLORIDE
     Dosage: 450 MG/EVERY 2ND DAY, 1-0-0-0, TABLETS
     Route: 048
  10. VIGANTOLETTEN 500I.E. [Concomitant]
     Dosage: 1000 IU, 1-0-0-0, TABLETS
     Route: 048
  11. INSULIN [Concomitant]
     Active Substance: INSULIN NOS
     Dosage: ACCORDING TO PLAN, SOLUTION FOR INJECTION/INFUSION
     Route: 058
  12. TORASEMID [Concomitant]
     Active Substance: TORSEMIDE
     Dosage: 50 MG, 1-0-0-0, TABLETS
     Route: 048
  13. AMLODIPIN [Concomitant]
     Active Substance: AMLODIPINE BESYLATE
     Dosage: 5 MG, 1-0-1-0, TABLETS
     Route: 048
  14. DOXAZOSIN [Concomitant]
     Active Substance: DOXAZOSIN MESYLATE
     Dosage: 8 MG, 1-0-2-0, RETARD TABLETS
     Route: 048
  15. CARBAMAZEPIN RETARD [Concomitant]
     Active Substance: CARBAMAZEPINE
     Dosage: 400 MG, 1-0-1-0, PROLONGED-RELEASE TABLETS
     Route: 048
  16. VANCOMYCIN [Concomitant]
     Active Substance: VANCOMYCIN
     Dosage: 200 MG, 1-0-1-0, SOLUTION FOR INJECTION/INFUSION
     Route: 042

REACTIONS (3)
  - Renal impairment [Unknown]
  - Cough [Unknown]
  - Inflammation [Unknown]
